FAERS Safety Report 17424416 (Version 1)
Quarter: 2020Q1

REPORT INFORMATION
  Report Type: Spontaneous
  Country: RU (occurrence: RU)
  Receive Date: 20200217
  Receipt Date: 20200217
  Transmission Date: 20200409
  Serious: Yes (Other)
  Sender: FDA-Public Use
  Company Number: NVSC2020RU042089

PATIENT
  Age: 53 Year
  Sex: Male

DRUGS (1)
  1. LENDACIN [Suspect]
     Active Substance: CEFTRIAXONE SODIUM
     Indication: NON-HODGKIN^S LYMPHOMA
     Dosage: UNK
     Route: 065

REACTIONS (1)
  - Blood pressure decreased [Recovered/Resolved]
